FAERS Safety Report 11236633 (Version 1)
Quarter: 2015Q3

REPORT INFORMATION
  Report Type: Spontaneous
  Country: US (occurrence: US)
  Receive Date: 20150702
  Receipt Date: 20150702
  Transmission Date: 20151125
  Serious: No
  Sender: FDA-Public Use
  Company Number: US-BRISTOL-MYERS SQUIBB COMPANY-BMS-2015-041363

PATIENT
  Sex: Female
  Weight: 54 kg

DRUGS (3)
  1. KENALOG-10 [Suspect]
     Active Substance: TRIAMCINOLONE ACETONIDE
     Indication: CYSTITIS INTERSTITIAL
     Dosage: UNK
     Route: 065
     Dates: start: 20150521
  2. LIDOCAINE. [Concomitant]
     Active Substance: LIDOCAINE
     Indication: PRODUCT USED FOR UNKNOWN INDICATION
     Route: 065
  3. HEPARIN [Concomitant]
     Active Substance: HEPARIN SODIUM
     Indication: PRODUCT USED FOR UNKNOWN INDICATION
     Route: 065

REACTIONS (8)
  - Feeling abnormal [Unknown]
  - Pruritus generalised [Unknown]
  - Photophobia [Unknown]
  - Paraesthesia [Not Recovered/Not Resolved]
  - Gastric dilatation [Unknown]
  - Pain [Unknown]
  - Dysuria [Unknown]
  - Insomnia [Unknown]
